FAERS Safety Report 24313987 (Version 1)
Quarter: 2024Q3

REPORT INFORMATION
  Report Type: Other
  Country: US (occurrence: US)
  Receive Date: 20240912
  Receipt Date: 20240912
  Transmission Date: 20241017
  Serious: No
  Sender: SIGMA TAU
  Company Number: US-LEADIANT BIOSCIENCES, INC.-2024LBI000147

PATIENT
  Sex: Female

DRUGS (1)
  1. MATULANE [Suspect]
     Active Substance: PROCARBAZINE HYDROCHLORIDE
     Indication: Oligodendroglioma
     Dosage: 50 MILLIGRAMS, 2 CAPSULES (100 MG TOTAL) AT BEDTIME  ON DAYS 8-21 EVERY 42-DAY CYCLE
     Route: 048
     Dates: start: 20230920

REACTIONS (2)
  - Fatigue [Unknown]
  - Nausea [Unknown]
